FAERS Safety Report 14457260 (Version 4)
Quarter: 2019Q3

REPORT INFORMATION
  Report Type: Report from Study
  Country: US (occurrence: US)
  Receive Date: 20180130
  Receipt Date: 20190801
  Transmission Date: 20191004
  Serious: Yes (Hospitalization, Other)
  Sender: FDA-Public Use
  Company Number: US-JNJFOC-20171134592

PATIENT
  Sex: Male

DRUGS (23)
  1. IMBRUVICA [Suspect]
     Active Substance: IBRUTINIB
     Route: 048
     Dates: start: 20161127
  2. TOPROL XL [Concomitant]
     Active Substance: METOPROLOL SUCCINATE
  3. LASIX [Concomitant]
     Active Substance: FUROSEMIDE
  4. IMBRUVICA [Suspect]
     Active Substance: IBRUTINIB
     Route: 048
     Dates: start: 20161122
  5. FERROUS SULFATE. [Concomitant]
     Active Substance: FERROUS SULFATE
  6. CIPROFLOXACIN. [Concomitant]
     Active Substance: CIPROFLOXACIN
  7. BICALUTAMIDE. [Concomitant]
     Active Substance: BICALUTAMIDE
  8. ZYTIGA [Concomitant]
     Active Substance: ABIRATERONE ACETATE
  9. DOXYCYCLINE HYCLATE. [Concomitant]
     Active Substance: DOXYCYCLINE HYCLATE
  10. IMBRUVICA [Suspect]
     Active Substance: IBRUTINIB
     Indication: PROSTATE CANCER
     Route: 048
     Dates: start: 20160106
  11. IMBRUVICA [Suspect]
     Active Substance: IBRUTINIB
     Route: 048
     Dates: start: 20170401, end: 20180404
  12. IRON [Concomitant]
     Active Substance: IRON
  13. ELIQUIS [Concomitant]
     Active Substance: APIXABAN
  14. ALLOPURINOL. [Concomitant]
     Active Substance: ALLOPURINOL
  15. PREDNISONE. [Concomitant]
     Active Substance: PREDNISONE
  16. TAMSULOSIN HYDROCHLORIDE. [Concomitant]
     Active Substance: TAMSULOSIN HYDROCHLORIDE
  17. MYRBETRIQ [Concomitant]
     Active Substance: MIRABEGRON
  18. PROTONIX [Concomitant]
     Active Substance: PANTOPRAZOLE SODIUM
  19. TRAMADOL. [Concomitant]
     Active Substance: TRAMADOL
  20. IMBRUVICA [Suspect]
     Active Substance: IBRUTINIB
     Indication: WALDENSTROM^S MACROGLOBULINAEMIA
     Route: 048
     Dates: start: 20140222
  21. RAMIPRIL. [Concomitant]
     Active Substance: RAMIPRIL
  22. SOTALOL. [Concomitant]
     Active Substance: SOTALOL
  23. CEPHALEXIN                         /00145501/ [Concomitant]
     Active Substance: CEPHALEXIN

REACTIONS (3)
  - Metastases to bone [Unknown]
  - Procedural haemorrhage [Recovered/Resolved]
  - Prostate cancer metastatic [Recovering/Resolving]
